FAERS Safety Report 8488090-0 (Version None)
Quarter: 2012Q3

REPORT INFORMATION
  Report Type: 
  Country: None (occurrence: None)
  Receive Date: 20120705
  Receipt Date: 20120629
  Transmission Date: 20120928
  Serious: Yes (Other)
  Sender: FDA-Public Use
  Company Number: BE-PFIZER INC-2012157457

PATIENT

DRUGS (1)
  1. SOLU-MEDROL [Suspect]
     Indication: ASTHMA
     Dosage: 125 MG, UNK
     Route: 051

REACTIONS (3)
  - PULSE ABSENT [None]
  - SHOCK [None]
  - PRESYNCOPE [None]
